FAERS Safety Report 23887792 (Version 1)
Quarter: 2024Q2

REPORT INFORMATION
  Report Type: Other
  Country: FR (occurrence: FR)
  Receive Date: 20240523
  Receipt Date: 20240523
  Transmission Date: 20240716
  Serious: Yes (Hospitalization)
  Sender: FDA-Public Use
  Company Number: None

PATIENT

DRUGS (3)
  1. BACLOFEN [Suspect]
     Active Substance: BACLOFEN
     Indication: Poisoning deliberate
     Dosage: 500 MILLIGRAM, 1 TOTAL
     Route: 048
     Dates: start: 20240401, end: 20240401
  2. OXAZEPAM [Suspect]
     Active Substance: OXAZEPAM
     Indication: Poisoning deliberate
     Dosage: 40 DOSAGE FORM, 1 TOTAL
     Route: 048
     Dates: start: 20240401, end: 20240401
  3. IMOVANE [Suspect]
     Active Substance: ZOPICLONE
     Indication: Poisoning deliberate
     Dosage: 42 DOSAGE FORM, 1 TOTAL
     Route: 048
     Dates: start: 20240401, end: 20240401

REACTIONS (3)
  - Bradycardia [Recovering/Resolving]
  - Respiratory depression [Recovering/Resolving]
  - Coma [Recovering/Resolving]

NARRATIVE: CASE EVENT DATE: 20240401
